FAERS Safety Report 22061460 (Version 2)
Quarter: 2023Q1

REPORT INFORMATION
  Report Type: Spontaneous
  Country: AT (occurrence: AT)
  Receive Date: 20230304
  Receipt Date: 20230323
  Transmission Date: 20230418
  Serious: Yes (Other)
  Sender: FDA-Public Use
  Company Number: AT-002147023-NVSC2022AT219191

PATIENT
  Sex: Female

DRUGS (2)
  1. HUMIRA [Suspect]
     Active Substance: ADALIMUMAB
     Indication: Hidradenitis
     Route: 058
  2. HUMIRA [Suspect]
     Active Substance: ADALIMUMAB
     Dosage: UNK
     Route: 065

REACTIONS (7)
  - Subdural haematoma evacuation [Unknown]
  - Abscess [Unknown]
  - Disease progression [Unknown]
  - Drug ineffective [Unknown]
  - Nodule [Unknown]
  - Surgery [Unknown]
  - Hidradenitis [Unknown]

NARRATIVE: CASE EVENT DATE: 20200101
